FAERS Safety Report 5772452-6 (Version None)
Quarter: 2008Q2

REPORT INFORMATION
  Report Type: 
  Country: None (occurrence: None)
  Receive Date: 20080610
  Receipt Date: 20080530
  Transmission Date: 20081010
  Serious: Yes (Hospitalization)
  Sender: FDA-Public Use
  Company Number: 2008BI009070

PATIENT
  Age: 53 Year
  Sex: Male
  Weight: 91.6266 kg

DRUGS (3)
  1. AVONEX [Suspect]
     Indication: MULTIPLE SCLEROSIS
     Dosage: 30 UG; QW; IM
     Route: 030
     Dates: start: 20050501
  2. METFORMIN [Concomitant]
  3. GLIMEPIRIDE [Concomitant]

REACTIONS (8)
  - ANAESTHETIC COMPLICATION [None]
  - ASTHENIA [None]
  - INJURY [None]
  - JOINT INJURY [None]
  - LUMBAR RADICULOPATHY [None]
  - MALAISE [None]
  - ROAD TRAFFIC ACCIDENT [None]
  - SPINAL DISORDER [None]
